FAERS Safety Report 15457920 (Version 1)
Quarter: 2018Q4

REPORT INFORMATION
  Report Type: Report from Study
  Country: IT (occurrence: IT)
  Receive Date: 20181003
  Receipt Date: 20181003
  Transmission Date: 20190204
  Serious: Yes (Hospitalization)
  Sender: FDA-Public Use
  Company Number: IT-TEVA-2018-IT-960355

PATIENT
  Age: 43 Year
  Sex: Female

DRUGS (4)
  1. MOMENDOL 220 MG COMPRESSE RIVESTITE CON FILM [Suspect]
     Active Substance: NAPROXEN SODIUM
     Route: 048
     Dates: start: 20180513, end: 20180513
  2. CITALOPRAM HYDROCHLORIDE [Suspect]
     Active Substance: CITALOPRAM HYDROCHLORIDE
     Route: 048
     Dates: start: 20180513, end: 20180513
  3. ALPRAZOLAM. [Suspect]
     Active Substance: ALPRAZOLAM
     Route: 048
     Dates: start: 20180513, end: 20180513
  4. REACTINE [CETIRIZINE HYDROCHLORIDE] [Suspect]
     Active Substance: CETIRIZINE HYDROCHLORIDE
     Route: 048
     Dates: start: 20180513, end: 20180513

REACTIONS (3)
  - Electrocardiogram QT prolonged [Recovered/Resolved]
  - Sopor [Recovered/Resolved]
  - Drug abuse [Recovered/Resolved]

NARRATIVE: CASE EVENT DATE: 20180513
